FAERS Safety Report 16106395 (Version 4)
Quarter: 2019Q4

REPORT INFORMATION
  Report Type: Report from Study
  Country: US (occurrence: US)
  Receive Date: 20190322
  Receipt Date: 20191015
  Transmission Date: 20200122
  Serious: Yes (Hospitalization)
  Sender: FDA-Public Use
  Company Number: US-ACTELION-A-NJ2019-187285

PATIENT
  Age: 83 Year
  Sex: Male

DRUGS (6)
  1. OPSUMIT [Suspect]
     Active Substance: MACITENTAN
     Dosage: UNK UNK, QPM
     Route: 048
     Dates: start: 201902
  2. OXYGEN. [Concomitant]
     Active Substance: OXYGEN
     Dosage: 3 L
  3. OPSUMIT [Suspect]
     Active Substance: MACITENTAN
     Indication: PULMONARY ARTERIAL HYPERTENSION
     Dosage: 10 MG, QD
     Route: 048
     Dates: start: 20190208
  4. VIAGRA [Concomitant]
     Active Substance: SILDENAFIL CITRATE
     Dosage: 1 UNK, TID
     Dates: start: 201902, end: 20190312
  5. VIAGRA [Concomitant]
     Active Substance: SILDENAFIL CITRATE
     Dosage: 2 UNK, TID
     Dates: start: 20190312
  6. OXYGEN. [Concomitant]
     Active Substance: OXYGEN
     Dosage: 5 L

REACTIONS (7)
  - Hospice care [Unknown]
  - Urinary tract infection [Not Recovered/Not Resolved]
  - Product dose omission [Unknown]
  - Blood urine present [Not Recovered/Not Resolved]
  - Adverse event [Not Recovered/Not Resolved]
  - Hypoacusis [Unknown]
  - Inability to afford medication [Unknown]

NARRATIVE: CASE EVENT DATE: 201902
